FAERS Safety Report 9476377 (Version 1)
Quarter: 2013Q3

REPORT INFORMATION
  Report Type: Spontaneous
  Country: NL (occurrence: NL)
  Receive Date: 20130826
  Receipt Date: 20130826
  Transmission Date: 20140515
  Serious: Yes (Congenital Anomaly)
  Sender: FDA-Public Use
  Company Number: NL-MERCK-1308NLD008034

PATIENT
  Age: 1 Day
  Sex: Male

DRUGS (2)
  1. PROPECIA [Suspect]
     Indication: ALOPECIA
     Dosage: 1 TIMES PER 1 DAYS
     Route: 064
     Dates: start: 2003
  2. VENTOLIN (ALBUTEROL SULFATE) [Concomitant]
     Dosage: 1 TIMES PER 1 DAYS 1 DF
     Route: 064
     Dates: start: 1993

REACTIONS (2)
  - Hypospadias [Unknown]
  - Exposure via father [Recovered/Resolved]
